FAERS Safety Report 4755723-1 (Version None)
Quarter: 2005Q3

REPORT INFORMATION
  Report Type: 
  Country: None (occurrence: None)
  Receive Date: 20050830
  Receipt Date: 20050713
  Transmission Date: 20060218
  Serious: Yes (Hospitalization)
  Sender: FDA-Public Use
  Company Number: US-BRISTOL-MYERS SQUIBB COMPANY-13036868

PATIENT
  Age: 49 Year
  Sex: Male
  Weight: 73 kg

DRUGS (6)
  1. ABILIFY [Suspect]
     Indication: SCHIZOPHRENIA
     Dates: start: 20041001, end: 20050708
  2. LISINOPRIL [Concomitant]
     Dosage: DOSE VALUE:  1 TABLET IN THE A.M., AND 2 TABLETS IN THE P.M.
  3. NORVASC [Concomitant]
  4. METOPROLOL TARTRATE [Concomitant]
  5. TEGRETOL [Concomitant]
  6. KLONOPIN [Concomitant]

REACTIONS (1)
  - RHABDOMYOLYSIS [None]
